FAERS Safety Report 13032626 (Version 2)
Quarter: 2016Q4

REPORT INFORMATION
  Report Type: Report from Study
  Country: US (occurrence: US)
  Receive Date: 20161215
  Receipt Date: 20161229
  Transmission Date: 20170207
  Serious: Yes (Other)
  Sender: FDA-Public Use
  Company Number: US-ALEXION PHARMACEUTICALS INC.-A201609697

PATIENT
  Age: 66 Year
  Sex: Female

DRUGS (4)
  1. SOLIRIS [Suspect]
     Active Substance: ECULIZUMAB
     Indication: HAEMOLYTIC URAEMIC SYNDROME
     Dosage: 1200 MG, UNK
     Route: 042
     Dates: start: 20140604
  2. SOLIRIS [Suspect]
     Active Substance: ECULIZUMAB
     Dosage: 1200 MG, Q3W (EVERY 21 DAYS)
     Route: 042
     Dates: end: 20160211
  3. SOLIRIS [Suspect]
     Active Substance: ECULIZUMAB
     Dosage: UNK
     Route: 042
     Dates: start: 20161110, end: 20161110
  4. SOLIRIS [Suspect]
     Active Substance: ECULIZUMAB
     Dosage: 1200 MG, EVERY 28 DAYS
     Route: 042
     Dates: start: 20160211, end: 20161108

REACTIONS (11)
  - Loss of consciousness [Recovered/Resolved]
  - Haemarthrosis [Recovered/Resolved]
  - Renal impairment [Unknown]
  - Treatment noncompliance [Unknown]
  - Blood potassium increased [Unknown]
  - Laboratory test abnormal [Unknown]
  - Drug dose omission [Not Recovered/Not Resolved]
  - Vein disorder [Unknown]
  - Arthralgia [Not Recovered/Not Resolved]
  - Inappropriate schedule of drug administration [Not Recovered/Not Resolved]
  - Peripheral swelling [Unknown]

NARRATIVE: CASE EVENT DATE: 20160211
